FAERS Safety Report 22121020 (Version 2)
Quarter: 2023Q1

REPORT INFORMATION
  Report Type: Spontaneous
  Country: US (occurrence: US)
  Receive Date: 20230321
  Receipt Date: 20230328
  Transmission Date: 20230418
  Serious: No
  Sender: FDA-Public Use
  Company Number: US-SANOFI-01540180

PATIENT
  Age: 69 Year
  Sex: Female

DRUGS (2)
  1. TOUJEO [Suspect]
     Active Substance: INSULIN GLARGINE
     Indication: Type 2 diabetes mellitus
     Dosage: 14 IU, QD
     Dates: start: 20230124
  2. TOUJEO [Suspect]
     Active Substance: INSULIN GLARGINE
     Dosage: 32 IU, QD
     Dates: start: 2023

REACTIONS (3)
  - Injection site haemorrhage [Unknown]
  - Injection site bruising [Unknown]
  - Dizziness [Unknown]

NARRATIVE: CASE EVENT DATE: 20230101
